FAERS Safety Report 5976758-7 (Version None)
Quarter: 2008Q4

REPORT INFORMATION
  Report Type: 
  Country: None (occurrence: None)
  Receive Date: 20081128
  Receipt Date: 20081117
  Transmission Date: 20090506
  Serious: Yes (Hospitalization)
  Sender: FDA-Public Use
  Company Number: ALA_00183_2008

PATIENT
  Sex: Female
  Weight: 56.6996 kg

DRUGS (14)
  1. REGLAN [Suspect]
     Indication: GASTROOESOPHAGEAL REFLUX DISEASE
     Dosage: (10 MG QID ORAL)
     Route: 048
     Dates: start: 20000101, end: 20080701
  2. REBIF /05983401/ [Concomitant]
  3. NIFEDIPINE [Concomitant]
  4. NIFEDIPINE [Concomitant]
  5. CLONAZEPAM [Concomitant]
  6. PROZAC /00724401/ [Concomitant]
  7. DITROPAN [Concomitant]
  8. AMPHETAMINE SULFATE [Concomitant]
  9. TRIMETHOPRIM [Concomitant]
  10. PRILOSEC [Concomitant]
  11. ALBUTEROL [Concomitant]
  12. QVAR 40 [Concomitant]
  13. NASAREL /00456601/ [Concomitant]
  14. VALIUM [Concomitant]

REACTIONS (4)
  - CONCUSSION [None]
  - FALL [None]
  - PARKINSONISM [None]
  - SPINAL FRACTURE [None]
